FAERS Safety Report 26096045 (Version 1)
Quarter: 2025Q4

REPORT INFORMATION
  Report Type: Spontaneous
  Country: EU (occurrence: EU)
  Receive Date: 20251127
  Receipt Date: 20251127
  Transmission Date: 20260117
  Serious: Yes (Other)
  Sender: AMGEN
  Company Number: EU-AMGEN-AUTSP2025231039

PATIENT
  Sex: Female

DRUGS (5)
  1. PROLIA [Suspect]
     Active Substance: DENOSUMAB
     Indication: Bone giant cell tumour
     Dosage: 60 MILLIGRAM, QMO (FOR SIX MONTHS)
     Route: 065
  2. PROLIA [Suspect]
     Active Substance: DENOSUMAB
     Dosage: 60 MILLIGRAM, Q6MO, (TAPERED)
     Route: 065
  3. PROLIA [Suspect]
     Active Substance: DENOSUMAB
     Dosage: 60 MILLIGRAM, QMO, (FOR THREE MONTHS)
     Route: 065
  4. PROLIA [Suspect]
     Active Substance: DENOSUMAB
     Dosage: 60 MILLIGRAM, Q2MO
     Route: 065
  5. PROLIA [Suspect]
     Active Substance: DENOSUMAB
     Dosage: 30 MILLIGRAM, Q3MO
     Route: 065

REACTIONS (5)
  - Acute kidney injury [Unknown]
  - Hypercalcaemia [Unknown]
  - Radius fracture [Recovered/Resolved]
  - Aneurysmal bone cyst [Unknown]
  - Rebound effect [Unknown]
